FAERS Safety Report 4525544-3 (Version None)
Quarter: 2004Q4

REPORT INFORMATION
  Report Type: 
  Country: None (occurrence: None)
  Receive Date: 20041116
  Receipt Date: 20040817
  Transmission Date: 20050328
  Serious: No
  Sender: FDA-Public Use
  Company Number: S04-USA-05839-01

PATIENT
  Age: 27 Year
  Sex: Female

DRUGS (5)
  1. NAMENDA [Suspect]
     Indication: CAUSALGIA
     Dosage: 5 MG QD PO
     Route: 048
     Dates: start: 20040616, end: 20040629
  2. METHADONE [Concomitant]
  3. ACTIQ [Concomitant]
  4. CLONAZEPAM [Concomitant]
  5. NALTREXONE [Concomitant]

REACTIONS (2)
  - PRURITUS [None]
  - SWELLING FACE [None]
